FAERS Safety Report 9729422 (Version 2)
Quarter: 2015Q3

REPORT INFORMATION
  Report Type: Spontaneous
  Country: US (occurrence: US)
  Receive Date: 20131204
  Receipt Date: 20150804
  Transmission Date: 20151125
  Serious: Yes (Hospitalization)
  Sender: FDA-Public Use
  Company Number: US-GILEAD-2009-0021254

PATIENT
  Age: 71 Year
  Sex: Male
  Weight: 105.23 kg

DRUGS (13)
  1. SINGULAIR [Concomitant]
     Active Substance: MONTELUKAST SODIUM
  2. LETAIRIS [Suspect]
     Active Substance: AMBRISENTAN
     Indication: PULMONARY ARTERIAL HYPERTENSION
     Route: 048
     Dates: start: 20090320, end: 20090323
  3. DOXAZOSIN [Concomitant]
     Active Substance: DOXAZOSIN\DOXAZOSIN MESYLATE
  4. WARFARIN [Concomitant]
     Active Substance: WARFARIN
  5. INDAPAMIDE. [Concomitant]
     Active Substance: INDAPAMIDE
  6. CALCIUM [Concomitant]
     Active Substance: CALCIUM
  7. KLOR-CON [Concomitant]
     Active Substance: POTASSIUM CHLORIDE
  8. ADVAIR HFA [Concomitant]
     Active Substance: FLUTICASONE PROPIONATE\SALMETEROL XINAFOATE
  9. ALLOPURINOL. [Concomitant]
     Active Substance: ALLOPURINOL
  10. DEMEDEX [Concomitant]
  11. GLYBURIDE. [Concomitant]
     Active Substance: GLYBURIDE
  12. MULTIVITAMIN [Concomitant]
     Active Substance: VITAMINS
  13. DIGOXIN. [Concomitant]
     Active Substance: DIGOXIN

REACTIONS (1)
  - Dyspnoea [Recovered/Resolved]

NARRATIVE: CASE EVENT DATE: 20090321
